FAERS Safety Report 10893271 (Version 1)
Quarter: 2015Q1

REPORT INFORMATION
  Report Type: Spontaneous
  Country: US (occurrence: US)
  Receive Date: 20150306
  Receipt Date: 20150306
  Transmission Date: 20150721
  Serious: Yes (Death, Other)
  Sender: FDA-Public Use
  Company Number: US-SPECTRUM PHARMACEUTICALS, INC.-15-M-US-00066

PATIENT

DRUGS (15)
  1. MARQIBO [Suspect]
     Active Substance: VINCRISTINE SULFATE
     Dosage: 2.25 MG/M2, WEEKLY
     Route: 042
     Dates: start: 20141224, end: 20141224
  2. MARQIBO [Suspect]
     Active Substance: VINCRISTINE SULFATE
     Dosage: 2.25 MG/M2, WEEKLY
     Route: 042
     Dates: start: 20141231, end: 20141231
  3. DEXAMETHASONE. [Concomitant]
     Active Substance: DEXAMETHASONE
     Indication: PRECURSOR T-LYMPHOBLASTIC LYMPHOMA/LEUKAEMIA RECURRENT
     Dosage: 20 MG/M2, TID DAYS 1-5
     Route: 065
     Dates: start: 20141215, end: 20141219
  4. BORTEZOMIB [Concomitant]
     Active Substance: BORTEZOMIB
     Dosage: 1.3 MG/M2, D8
     Dates: start: 20141222, end: 20141222
  5. CYTARABINE. [Concomitant]
     Active Substance: CYTARABINE
     Indication: PRODUCT USED FOR UNKNOWN INDICATION
     Dosage: 36 MG, D1
     Route: 037
     Dates: start: 20141203, end: 20141203
  6. DEXAMETHASONE. [Concomitant]
     Active Substance: DEXAMETHASONE
     Dosage: UNK
  7. MITOXANTRONE [Concomitant]
     Active Substance: MITOXANTRONE HYDROCHLORIDE
     Dosage: 2.25 MG/M2, D2
     Dates: start: 20141204, end: 20141204
  8. PEG/L-ASPARAGINASE [Concomitant]
     Active Substance: PEGASPARGASE
     Indication: PRECURSOR T-LYMPHOBLASTIC LYMPHOMA/LEUKAEMIA RECURRENT
     Dosage: 2500 UNITS/M2/DOSE, D3
     Route: 065
     Dates: start: 20141217, end: 20141217
  9. BORTEZOMIB [Concomitant]
     Active Substance: BORTEZOMIB
     Dosage: 1.3 MG/M2, D4
     Route: 065
     Dates: start: 20141218, end: 20141218
  10. MITOXANTRONE [Concomitant]
     Active Substance: MITOXANTRONE HYDROCHLORIDE
     Indication: PRECURSOR T-LYMPHOBLASTIC LYMPHOMA/LEUKAEMIA RECURRENT
     Dosage: 10 MG/M2, D1
     Route: 065
     Dates: start: 20141203, end: 20141203
  11. MARQIBO [Suspect]
     Active Substance: VINCRISTINE SULFATE
     Indication: ACUTE LYMPHOCYTIC LEUKAEMIA
     Dosage: 2.25 MG/M2, WEEKLY
     Dates: start: 20141217, end: 20141217
  12. BORTEZOMIB [Concomitant]
     Active Substance: BORTEZOMIB
     Indication: PRECURSOR T-LYMPHOBLASTIC LYMPHOMA/LEUKAEMIA RECURRENT
     Dosage: 1.3 MG/M2, D1
     Route: 065
     Dates: start: 20141201, end: 20141201
  13. HYDROCORTISONE. [Concomitant]
     Active Substance: HYDROCORTISONE
     Indication: PRODUCT USED FOR UNKNOWN INDICATION
     Dosage: 24 MG, D1
     Route: 037
     Dates: start: 20141203, end: 20141203
  14. METHOTREXATE [Concomitant]
     Active Substance: METHOTREXATE
     Indication: PRODUCT USED FOR UNKNOWN INDICATION
     Dosage: 12 MG, D1
     Route: 037
     Dates: start: 20141203, end: 20141203
  15. BORTEZOMIB [Concomitant]
     Active Substance: BORTEZOMIB
     Dosage: 1.3 MG/M2, D11
     Route: 065
     Dates: start: 20141225, end: 20141225

REACTIONS (2)
  - Hepatic failure [Fatal]
  - Mental status changes [Unknown]

NARRATIVE: CASE EVENT DATE: 20150102
